FAERS Safety Report 7118041-2 (Version None)
Quarter: 2010Q4

REPORT INFORMATION
  Report Type: 
  Country: None (occurrence: None)
  Receive Date: 20101123
  Receipt Date: 20101111
  Transmission Date: 20110411
  Serious: Yes (Hospitalization)
  Sender: FDA-Public Use
  Company Number: TR-ELI_LILLY_AND_COMPANY-TR201011003764

PATIENT
  Age: 54 Year
  Sex: Male

DRUGS (5)
  1. HUMALOG MIX 75/25 [Suspect]
     Indication: DIABETES MELLITUS
     Dosage: 20 U, 2/D
     Route: 058
     Dates: start: 20101001
  2. KARVEZIDE [Concomitant]
     Indication: HYPERTENSION
  3. CORASPIN [Concomitant]
     Indication: ANTICOAGULANT THERAPY
  4. COUMADIN [Concomitant]
     Indication: ANTICOAGULANT THERAPY
  5. DIOSMIN [Concomitant]
     Indication: INFARCTION

REACTIONS (3)
  - BLOOD GLUCOSE INCREASED [None]
  - FISTULA [None]
  - HYPERHIDROSIS [None]
